FAERS Safety Report 8851869 (Version 2)
Quarter: 2013Q1

REPORT INFORMATION
  Report Type: Spontaneous
  Country: JP (occurrence: None)
  Receive Date: 20121017
  Receipt Date: 20130108
  Transmission Date: 20140127
  Serious: Yes (Hospitalization)
  Sender: FDA-Public Use
  Company Number: JP-1194563

PATIENT
  Age: 67 Year
  Sex: Female

DRUGS (1)
  1. FLUORESCEIN [Suspect]
     Indication: ANGIOGRAM RETINA
     Route: 042

REACTIONS (5)
  - Renal disorder [None]
  - Blood creatinine increased [None]
  - Renal tubular disorder [None]
  - Lymphocytic infiltration [None]
  - Nephropathy toxic [None]
